FAERS Safety Report 8270548-0 (Version None)
Quarter: 2012Q2

REPORT INFORMATION
  Report Type: 
  Country: None (occurrence: None)
  Receive Date: 20120410
  Receipt Date: 20120330
  Transmission Date: 20120825
  Serious: Yes (Other)
  Sender: FDA-Public Use
  Company Number: GB-BRISTOL-MYERS SQUIBB COMPANY-16489346

PATIENT
  Age: 63 Year
  Sex: Female
  Weight: 72 kg

DRUGS (8)
  1. SAXAGLIPTIN [Suspect]
     Indication: DIABETES MELLITUS
     Dates: start: 20100501
  2. METFORMIN HCL [Concomitant]
  3. ADCAL-D3 [Concomitant]
  4. PRAVASTATIN SODIUM [Concomitant]
  5. LANSOPRAZOLE [Concomitant]
  6. ETORICOXIB [Concomitant]
  7. ASPIRIN [Concomitant]
  8. VITAMIN B-12 [Concomitant]
     Indication: VITAMIN B12 DEFICIENCY
     Dosage: LONG STANDING DEFICIENCY INJECTION

REACTIONS (1)
  - THROMBOCYTOPENIA [None]
